FAERS Safety Report 6102191-3 (Version None)
Quarter: 2009Q1

REPORT INFORMATION
  Report Type: 
  Country: None (occurrence: None)
  Receive Date: 20090303
  Receipt Date: 20090303
  Transmission Date: 20090719
  Serious: Yes (Other)
  Sender: FDA-Public Use
  Company Number: None

PATIENT
  Age: 54 Year
  Sex: Female
  Weight: 63.5036 kg

DRUGS (1)
  1. ACTONEL [Suspect]
     Indication: OSTEOPOROSIS
     Dosage: ONE TABLET WEEKLY PO
     Route: 048
     Dates: start: 20010401, end: 20080901

REACTIONS (8)
  - ARTHRALGIA [None]
  - CONSTIPATION [None]
  - INAPPROPRIATE SCHEDULE OF DRUG ADMINISTRATION [None]
  - JOINT CREPITATION [None]
  - JOINT DISLOCATION [None]
  - PAIN IN JAW [None]
  - SKIN PAPILLOMA [None]
  - URINARY INCONTINENCE [None]
